FAERS Safety Report 7772812-8 (Version None)
Quarter: 2011Q3

REPORT INFORMATION
  Report Type: 
  Country: None (occurrence: None)
  Receive Date: 20110922
  Receipt Date: 20110113
  Transmission Date: 20111222
  Serious: Yes (Other)
  Sender: FDA-Public Use
  Company Number: US-ASTRAZENECA-2008UW14280

PATIENT
  Age: 514 Month
  Sex: Male
  Weight: 108 kg

DRUGS (14)
  1. PRAVACHOL [Concomitant]
     Dates: start: 20050224
  2. SEROQUEL [Suspect]
     Indication: BIPOLAR DISORDER
     Route: 048
     Dates: start: 20021024
  3. CLARINEX [Concomitant]
     Dates: start: 20050224
  4. RISPERDAL [Concomitant]
     Dates: start: 19970701, end: 20041101
  5. VIAGRA [Concomitant]
     Dates: start: 20050224
  6. DAYPRO [Concomitant]
     Dates: start: 20050224
  7. TOPROL-XL [Concomitant]
     Dates: start: 20050224
  8. NORVASC [Concomitant]
     Dates: start: 20050224
  9. COLACE [Concomitant]
     Dates: start: 20050224
  10. BENZTROPINE MES [Concomitant]
     Dates: start: 20020921
  11. ASPIRIN [Concomitant]
     Dates: start: 20050224
  12. SEROQUEL [Suspect]
     Dosage: 25-100MG
     Route: 048
     Dates: start: 20021001
  13. PERPHENAZINE [Concomitant]
     Dates: start: 20021024
  14. LEXAPRO [Concomitant]
     Dates: start: 20021115

REACTIONS (2)
  - TYPE 2 DIABETES MELLITUS [None]
  - ERECTILE DYSFUNCTION [None]
